FAERS Safety Report 15661432 (Version 1)
Quarter: 2018Q4

REPORT INFORMATION
  Report Type: Spontaneous
  Country: DE (occurrence: DE)
  Receive Date: 20181127
  Receipt Date: 20181127
  Transmission Date: 20190205
  Serious: Yes (Death, Hospitalization)
  Sender: FDA-Public Use
  Company Number: PHHY2018DE166345

PATIENT
  Age: 79 Year
  Sex: Male
  Weight: 105 kg

DRUGS (5)
  1. ENTRESTO [Suspect]
     Active Substance: SACUBITRIL\VALSARTAN
     Indication: CARDIAC FAILURE
     Dosage: 2 ?G/L, QD
     Route: 048
     Dates: start: 20180807
  2. METOPROLOL. [Concomitant]
     Active Substance: METOPROLOL
     Indication: CARDIAC FAILURE
     Dosage: 1 TO 1/2 DF
     Route: 048
  3. SIMVASTATIN. [Concomitant]
     Active Substance: SIMVASTATIN
     Indication: CARDIAC FAILURE
     Dosage: 10 MG, QD
     Route: 048
     Dates: start: 2014
  4. JANUMET [Concomitant]
     Active Substance: METFORMIN HYDROCHLORIDE\SITAGLIPTIN PHOSPHATE
     Indication: CARDIAC FAILURE
     Dosage: 2 DF (UG/LITRE), QD
     Route: 048
     Dates: start: 2014
  5. TORASEMID [Concomitant]
     Active Substance: TORSEMIDE
     Indication: CARDIAC FAILURE
     Dosage: 2-1-0
     Route: 048

REACTIONS (4)
  - Renal failure [Fatal]
  - Diarrhoea [Fatal]
  - Anuria [Fatal]
  - Sepsis [Fatal]

NARRATIVE: CASE EVENT DATE: 20180810
